FAERS Safety Report 4420771-8 (Version None)
Quarter: 2004Q3

REPORT INFORMATION
  Report Type: 
  Country: None (occurrence: None)
  Receive Date: 20040809
  Receipt Date: 20040520
  Transmission Date: 20050211
  Serious: No
  Sender: FDA-Public Use
  Company Number: US-GLAXOSMITHKLINE-A0511622A

PATIENT
  Age: 50 Year
  Sex: Male

DRUGS (2)
  1. PAXIL [Suspect]
     Route: 048
  2. LIPITOR [Concomitant]

REACTIONS (1)
  - PERSONALITY CHANGE [None]
